FAERS Safety Report 4657030-4 (Version None)
Quarter: 2005Q2

REPORT INFORMATION
  Report Type: 
  Country: None (occurrence: None)
  Receive Date: 20050506
  Receipt Date: 20050420
  Transmission Date: 20051028
  Serious: No
  Sender: FDA-Public Use
  Company Number: 10964

PATIENT

DRUGS (7)
  1. METHOTREXATE [Suspect]
     Indication: ACUTE LYMPHOCYTIC LEUKAEMIA
     Dosage: IT
     Route: 037
  2. LEUCOVORIN CALCIUM [Concomitant]
  3. PREDNISONE [Concomitant]
  4. VINCRISTINE [Concomitant]
  5. ELSPAR [Concomitant]
  6. DAUNORUBICIN HCL [Concomitant]
  7. MERCAPTOPURINE [Concomitant]

REACTIONS (1)
  - NEUROTOXICITY [None]
